FAERS Safety Report 6359117-7 (Version None)
Quarter: 2009Q3

REPORT INFORMATION
  Report Type: 
  Country: None (occurrence: None)
  Receive Date: 20090917
  Receipt Date: 20071121
  Transmission Date: 20100115
  Serious: Yes (Other)
  Sender: FDA-Public Use
  Company Number: US-ASTRAZENECA-2007UW11237

PATIENT
  Age: 593 Month
  Sex: Female
  Weight: 107.5 kg

DRUGS (18)
  1. SEROQUEL [Suspect]
     Indication: DEPRESSION
     Route: 048
     Dates: start: 19960101, end: 20070101
  2. SEROQUEL [Suspect]
     Indication: ANXIETY
     Route: 048
     Dates: start: 19960101, end: 20070101
  3. SEROQUEL [Suspect]
     Dosage: 25 MG TO 100 MG
     Route: 048
     Dates: start: 20020118
  4. SEROQUEL [Suspect]
     Dosage: 25 MG TO 100 MG
     Route: 048
     Dates: start: 20020118
  5. ALILIFY [Concomitant]
     Route: 048
     Dates: start: 20000101, end: 20010101
  6. GEODON [Concomitant]
     Dates: start: 20000101, end: 20010101
  7. RISPERDAL [Concomitant]
     Route: 048
     Dates: start: 20000101, end: 20010101
  8. KLONOPIN [Concomitant]
     Dates: start: 19961030
  9. IMIPRAMINE [Concomitant]
     Dosage: 50 MG FOUR AT BEDTIME
     Route: 048
     Dates: start: 19961030
  10. AMBIEN [Concomitant]
     Indication: INSOMNIA
     Route: 048
     Dates: start: 19961030
  11. LITHIUM CARBONATE [Concomitant]
     Route: 048
     Dates: start: 19961030
  12. ZOLOFT [Concomitant]
     Route: 048
     Dates: start: 20030312
  13. ALTACE [Concomitant]
     Route: 048
     Dates: start: 20030312
  14. TRAZODONE [Concomitant]
     Indication: INSOMNIA
     Dosage: 50 MG TO 100 MG
     Route: 048
     Dates: start: 20030312
  15. ATIVAN [Concomitant]
     Dates: start: 19970917
  16. XANAX [Concomitant]
     Dates: start: 19980915
  17. LOPRESSOR HCT [Concomitant]
     Dosage: 100/25 IN THE MORNING
     Route: 048
     Dates: start: 20010928
  18. PAXIL [Concomitant]
     Route: 048
     Dates: start: 19970106

REACTIONS (3)
  - DIABETES MELLITUS [None]
  - DIABETIC NEPHROPATHY [None]
  - TYPE 2 DIABETES MELLITUS [None]
